FAERS Safety Report 5693146-1 (Version None)
Quarter: 2008Q2

REPORT INFORMATION
  Report Type: 
  Country: None (occurrence: None)
  Receive Date: 20080402
  Receipt Date: 20080402
  Transmission Date: 20081010
  Serious: Yes (Other)
  Sender: FDA-Public Use
  Company Number: None

PATIENT
  Age: 52 Year
  Sex: Female
  Weight: 64.8644 kg

DRUGS (1)
  1. CHANTIX [Suspect]
     Indication: SMOKING CESSATION THERAPY
     Dosage: 1 2 X DAILY PO
     Route: 048
     Dates: start: 20070924, end: 20071114

REACTIONS (3)
  - AGGRESSION [None]
  - DEREALISATION [None]
  - INTENTIONAL SELF-INJURY [None]
